FAERS Safety Report 11563382 (Version 1)
Quarter: 2015Q3

REPORT INFORMATION
  Report Type: Spontaneous
  Country: US (occurrence: US)
  Receive Date: 20150916
  Receipt Date: 20150916
  Transmission Date: 20151125
  Serious: No
  Sender: FDA-Public Use
  Company Number: US-ELI_LILLY_AND_COMPANY-US200901004784

PATIENT
  Sex: Female

DRUGS (2)
  1. OSTEO BI-FLEX [Concomitant]
     Active Substance: CHONDROITIN SULFATE A\GLUCOSAMINE
  2. FORTEO [Suspect]
     Active Substance: TERIPARATIDE
     Indication: OSTEOPOROSIS
     Dosage: UNK, UNK
     Dates: start: 20090109, end: 20090127

REACTIONS (8)
  - Headache [Recovering/Resolving]
  - Oral pain [Recovering/Resolving]
  - Nervousness [Recovering/Resolving]
  - Glossodynia [Recovering/Resolving]
  - Anxiety [Recovering/Resolving]
  - Mouth ulceration [Recovering/Resolving]
  - Swollen tongue [Recovering/Resolving]
  - Tongue disorder [Recovering/Resolving]

NARRATIVE: CASE EVENT DATE: 20090116
